FAERS Safety Report 20920268 (Version 2)
Quarter: 2022Q2

REPORT INFORMATION
  Report Type: Spontaneous
  Country: CZ (occurrence: CZ)
  Receive Date: 20220606
  Receipt Date: 20220621
  Transmission Date: 20220721
  Serious: Yes (Other)
  Sender: FDA-Public Use
  Company Number: None

PATIENT
  Age: 66 Year
  Weight: 80 kg

DRUGS (3)
  1. RIFAXIMIN [Suspect]
     Active Substance: RIFAXIMIN
     Indication: Product used for unknown indication
     Route: 048
     Dates: start: 20220510, end: 20220516
  2. APO ALLOPURINOL [Concomitant]
     Indication: Gout
     Route: 065
  3. VINPOCETINE [Concomitant]
     Active Substance: VINPOCETINE
     Indication: Cerebral hypoperfusion
     Route: 065

REACTIONS (5)
  - Ureteritis [Not Recovered/Not Resolved]
  - Urethritis [Not Recovered/Not Resolved]
  - Micturition disorder [Not Recovered/Not Resolved]
  - Prostate infection [Not Recovered/Not Resolved]
  - Dysuria [Not Recovered/Not Resolved]

NARRATIVE: CASE EVENT DATE: 20220516
